FAERS Safety Report 5668956-7 (Version None)
Quarter: 2008Q1

REPORT INFORMATION
  Report Type: 
  Country: None (occurrence: None)
  Receive Date: 20080317
  Receipt Date: 20080310
  Transmission Date: 20080703
  Serious: Yes (Other)
  Sender: FDA-Public Use
  Company Number: GB-BAYER-200810280BNE

PATIENT
  Age: 64 Year
  Sex: Male

DRUGS (2)
  1. LEVITRA [Suspect]
     Indication: RADICAL PROSTATECTOMY
     Route: 048
     Dates: start: 20071214
  2. LEVITRA [Suspect]
     Route: 048
     Dates: start: 20071218

REACTIONS (3)
  - CONVULSION [None]
  - LOSS OF CONSCIOUSNESS [None]
  - RADICAL PROSTATECTOMY [None]
